FAERS Safety Report 21486377 (Version 1)
Quarter: 2022Q4

REPORT INFORMATION
  Report Type: Spontaneous
  Country: AT (occurrence: AT)
  Receive Date: 20221020
  Receipt Date: 20221020
  Transmission Date: 20230113
  Serious: Yes (Hospitalization, Other)
  Sender: FDA-Public Use
  Company Number: AT-002147023-NVSC2021AT042044

PATIENT
  Age: 77 Year
  Sex: Female

DRUGS (5)
  1. BOSUTINIB [Suspect]
     Active Substance: BOSUTINIB
     Dosage: 400 MG, 1X/DAY (400 MG, QD, (1-0-0))
     Route: 065
  2. ASCIMINIB [Suspect]
     Active Substance: ASCIMINIB
     Dosage: 50 MG, 2X/DAY [50 MG, BID, (1-0-1)]
     Route: 065
  3. DASATINIB [Suspect]
     Active Substance: DASATINIB
     Indication: Chronic myeloid leukaemia
     Dosage: 50 MG, 1X/DAY (50 MG, QD, (1-0-0))
     Route: 065
  4. IMATINIB [Suspect]
     Active Substance: IMATINIB
     Indication: Chronic myeloid leukaemia
     Dosage: 400 MG, 1X/DAY (400 MG, QD, (1-0-0))
     Route: 065
     Dates: start: 20200706, end: 202007
  5. IMATINIB [Suspect]
     Active Substance: IMATINIB
     Dosage: UNK
     Route: 065
     Dates: start: 20200616, end: 20200715

REACTIONS (12)
  - Acute kidney injury [Unknown]
  - Bronchiolitis [Recovering/Resolving]
  - Pulmonary hypertension [Recovered/Resolved]
  - Renal impairment [Recovering/Resolving]
  - Drug intolerance [Unknown]
  - Hypotension [Unknown]
  - Leukocytosis [Unknown]
  - Vomiting [Unknown]
  - Cytogenetic analysis abnormal [Unknown]
  - Cardiovascular disorder [Unknown]
  - Muscle spasms [Unknown]
  - Diarrhoea [Unknown]
